FAERS Safety Report 9471029 (Version 1)
Quarter: 2013Q3

REPORT INFORMATION
  Report Type: Spontaneous
  Country: RS (occurrence: RS)
  Receive Date: 20130822
  Receipt Date: 20130822
  Transmission Date: 20140515
  Serious: Yes (Death, Other)
  Sender: FDA-Public Use
  Company Number: PHHY2013RS089187

PATIENT
  Age: 15 Year
  Sex: Male

DRUGS (3)
  1. CICLOSPORIN [Suspect]
     Indication: PROPHYLAXIS AGAINST GRAFT VERSUS HOST DISEASE
  2. FLUDARABINE [Concomitant]
     Indication: STEM CELL TRANSPLANT
  3. TRIMETHOPRIM SULFAMETHOXAZOLE [Concomitant]
     Indication: INFECTION PROPHYLAXIS

REACTIONS (13)
  - Toxoplasmosis [Fatal]
  - Pyrexia [Fatal]
  - Pleural effusion [Fatal]
  - Chest pain [Fatal]
  - Acinetobacter infection [Fatal]
  - Multi-organ failure [Fatal]
  - Sepsis [Fatal]
  - General physical health deterioration [Fatal]
  - Acute respiratory distress syndrome [Unknown]
  - Graft versus host disease in intestine [Unknown]
  - Graft versus host disease in skin [Unknown]
  - Renal failure acute [Unknown]
  - Respiratory failure [Unknown]
